FAERS Safety Report 24664030 (Version 1)
Quarter: 2024Q4

REPORT INFORMATION
  Report Type: Spontaneous
  Country: FR (occurrence: FR)
  Receive Date: 20241126
  Receipt Date: 20241126
  Transmission Date: 20250115
  Serious: Yes (Other)
  Sender: TAKEDA
  Company Number: None

PATIENT
  Age: 72 Year
  Sex: Male
  Weight: 75 kg

DRUGS (16)
  1. LANSOPRAZOLE [Suspect]
     Active Substance: LANSOPRAZOLE
     Indication: Prophylaxis
     Dosage: 1 DOSAGE FORM, QD
     Dates: end: 20240731
  2. NIVOLUMAB [Suspect]
     Active Substance: NIVOLUMAB
     Indication: Hypopharyngeal cancer
     Dosage: 1 DOSAGE FORM, Q2WEEKS
     Dates: start: 20240411, end: 20240606
  3. DOCETAXEL [Suspect]
     Active Substance: DOCETAXEL
     Indication: Hypopharyngeal cancer
     Dosage: 1 DOSAGE FORM, Q2WEEKS
     Dates: start: 20240111, end: 20240411
  4. CARBOPLATIN [Suspect]
     Active Substance: CARBOPLATIN
     Indication: Hypopharyngeal cancer
     Dosage: 1 DOSAGE FORM, Q2WEEKS
     Dates: start: 20240111, end: 20240411
  5. FLUOROURACIL [Suspect]
     Active Substance: FLUOROURACIL
     Indication: Hypopharyngeal cancer
     Dosage: 1 DOSAGE FORM, Q2WEEKS
     Dates: start: 20240111, end: 20240411
  6. FLECAINIDE [Concomitant]
     Active Substance: FLECAINIDE
     Dosage: 2 DOSAGE FORM, QD
     Dates: start: 2017
  7. ATORVASTATIN [Concomitant]
     Active Substance: ATORVASTATIN
     Dosage: 80 MILLIGRAM, QD
     Dates: start: 2017
  8. HYDROCORTISONE [Concomitant]
     Active Substance: HYDROCORTISONE
     Dosage: 20 MILLIGRAM, QD
  9. INNOHEP [Concomitant]
     Active Substance: TINZAPARIN SODIUM
     Dosage: 12000 INTERNATIONAL UNIT, QD
     Dates: start: 202303
  10. ALPRAZOLAM [Concomitant]
     Active Substance: ALPRAZOLAM
     Dosage: 0.13 MILLIGRAM, QD
     Dates: start: 2017
  11. BISOPROLOL FUMARATE [Concomitant]
     Active Substance: BISOPROLOL FUMARATE
     Dosage: 1.25 MILLIGRAM, QD
     Dates: start: 202202
  12. PERINDOPRIL [Concomitant]
     Active Substance: PERINDOPRIL
     Dosage: 8 MILLIGRAM, QD
     Dates: start: 201806
  13. AMLODIPINE [Concomitant]
     Active Substance: AMLODIPINE BESYLATE
     Dosage: 10 MILLIGRAM, QD
     Dates: start: 202202
  14. KARDEGIC [Concomitant]
     Active Substance: ASPIRIN DL-LYSINE
     Dosage: 1 DOSAGE FORM, QD
     Dates: start: 2017
  15. PACLITAXEL [Concomitant]
     Active Substance: PACLITAXEL
     Dosage: 1 DOSAGE FORM, 1/WEEK
     Dates: start: 20240606
  16. CETUXIMAB [Concomitant]
     Active Substance: CETUXIMAB
     Dosage: 1 DOSAGE FORM, Q2WEEKS
     Dates: start: 20240606

REACTIONS (1)
  - Colitis microscopic [Recovered/Resolved]
